FAERS Safety Report 23844727 (Version 1)
Quarter: 2024Q2

REPORT INFORMATION
  Report Type: Spontaneous
  Country: US (occurrence: US)
  Receive Date: 20240511
  Receipt Date: 20240511
  Transmission Date: 20240715
  Serious: No
  Sender: FDA-Public Use
  Company Number: US-SA-SAC20240507000496

PATIENT
  Age: 56 Year
  Sex: Female

DRUGS (2)
  1. REZUROCK [Suspect]
     Active Substance: BELUMOSUDIL
     Indication: Chronic graft versus host disease
     Dosage: 200MG, DAILY, QD
     Route: 048
     Dates: start: 20231212
  2. BUPROPION [Concomitant]
     Active Substance: BUPROPION
     Dosage: 300 MG, QD

REACTIONS (5)
  - Headache [Unknown]
  - Nasopharyngitis [Unknown]
  - Fatigue [Unknown]
  - Muscle spasms [Unknown]
  - Concomitant drug effect decreased [Unknown]
